FAERS Safety Report 15888224 (Version 1)
Quarter: 2019Q1

REPORT INFORMATION
  Report Type: Spontaneous
  Country: US (occurrence: US)
  Receive Date: 20190130
  Receipt Date: 20190130
  Transmission Date: 20190417
  Serious: No
  Sender: FDA-Public Use
  Company Number: US-MICRO LABS LIMITED-ML2018-02872

PATIENT
  Age: 59 Year
  Sex: Female
  Weight: 113.5 kg

DRUGS (7)
  1. VITAMIN D3 [Concomitant]
     Active Substance: CHOLECALCIFEROL
  2. AMOXICILLIN AND CLAVULANATE POTASSIUM TABLETS USP 875 MG/125 MG [Suspect]
     Active Substance: AMOXICILLIN\CLAVULANATE POTASSIUM
     Indication: RESPIRATORY TRACT INFECTION
     Dosage: 875 MG/125 MG
     Route: 048
     Dates: start: 20181128, end: 20181129
  3. ZITHROMAX [Concomitant]
     Active Substance: AZITHROMYCIN DIHYDRATE
  4. COBALAMIN [Concomitant]
     Active Substance: COBALAMIN
  5. PRESER VISION AREDS 2, FORMULA [Concomitant]
     Indication: EYE DISORDER
  6. ENALAPRIL [Concomitant]
     Active Substance: ENALAPRIL
     Indication: HYPERTENSION
  7. PANTOPRAZOLE SODIUM. [Concomitant]
     Active Substance: PANTOPRAZOLE SODIUM
     Indication: GASTROOESOPHAGEAL REFLUX DISEASE

REACTIONS (5)
  - Nausea [Recovered/Resolved]
  - Abdominal pain upper [Recovered/Resolved]
  - Influenza like illness [Recovered/Resolved]
  - Gastrointestinal pain [Recovered/Resolved]
  - Vomiting [Recovered/Resolved]

NARRATIVE: CASE EVENT DATE: 20181128
